FAERS Safety Report 8036240-2 (Version None)
Quarter: 2012Q1

REPORT INFORMATION
  Report Type: 
  Country: None (occurrence: None)
  Receive Date: 20120111
  Receipt Date: 20120105
  Transmission Date: 20120608
  Serious: Yes (Hospitalization, Other)
  Sender: FDA-Public Use
  Company Number: PHHY2011FR109853

PATIENT
  Sex: Female

DRUGS (1)
  1. EXJADE [Suspect]
     Indication: HAEMOCHROMATOSIS
     Dosage: 750 MG, DAILY
     Dates: start: 20070807, end: 20110822

REACTIONS (3)
  - ATRIAL TACHYCARDIA [None]
  - ANAEMIA [None]
  - PHLEBITIS [None]
